FAERS Safety Report 4765955-4 (Version None)
Quarter: 2005Q3

REPORT INFORMATION
  Report Type: 
  Country: None (occurrence: None)
  Receive Date: 20050908
  Receipt Date: 20050908
  Transmission Date: 20060218
  Serious: Yes (Life-Threatening, Hospitalization)
  Sender: FDA-Public Use
  Company Number: None

PATIENT
  Age: 79 Year
  Sex: Female

DRUGS (13)
  1. TRIAMCINOLONE [Suspect]
     Indication: BRONCHOSPASM
  2. ASPIRIN [Concomitant]
  3. PLAVIX [Concomitant]
  4. ATENOLOL [Concomitant]
  5. GLYBURIDE [Concomitant]
  6. POTASSIUM [Concomitant]
  7. LASIX [Concomitant]
  8. ADVAIR DISKUS 100/50 [Concomitant]
  9. PEPCID [Concomitant]
  10. ANUSOL [Concomitant]
  11. LEXAPRO [Concomitant]
  12. ACCUPRIL [Concomitant]
  13. TUMS [Concomitant]

REACTIONS (6)
  - CARDIAC DISORDER [None]
  - CARDIAC FAILURE CONGESTIVE [None]
  - CONDITION AGGRAVATED [None]
  - DYSPNOEA [None]
  - HYPOXIA [None]
  - RESPIRATORY DISTRESS [None]
